FAERS Safety Report 14197452 (Version 2)
Quarter: 2018Q1

REPORT INFORMATION
  Report Type: Spontaneous
  Country: BR (occurrence: BR)
  Receive Date: 20171116
  Receipt Date: 20180207
  Transmission Date: 20180508
  Serious: Yes (Other)
  Sender: FDA-Public Use
  Company Number: BR-AMGEN-BRASP2017051812

PATIENT
  Age: 48 Year
  Sex: Female

DRUGS (2)
  1. ENBREL [Suspect]
     Active Substance: ETANERCEPT
     Dosage: 100 MG PER WEEK
     Route: 065
  2. ENBREL [Suspect]
     Active Substance: ETANERCEPT
     Indication: PRODUCT USED FOR UNKNOWN INDICATION
     Dosage: DURING PERIOD, THE ATTACK DOSE (TWO PER WEEK OF 50MG) USED
     Route: 065
     Dates: start: 201701, end: 201704

REACTIONS (10)
  - Skin burning sensation [Unknown]
  - Erythema [Unknown]
  - Pain [Not Recovered/Not Resolved]
  - Product use issue [Unknown]
  - Lymphadenopathy [Unknown]
  - Pruritus [Unknown]
  - Injection site discomfort [Unknown]
  - Injection site erythema [Unknown]
  - Injection site pain [Unknown]
  - Psoriatic arthropathy [Unknown]

NARRATIVE: CASE EVENT DATE: 2017
